FAERS Safety Report 6319247-2 (Version None)
Quarter: 2009Q3

REPORT INFORMATION
  Report Type: 
  Country: None (occurrence: None)
  Receive Date: 20090821
  Receipt Date: 20080816
  Transmission Date: 20100115
  Serious: No
  Sender: FDA-Public Use
  Company Number: US-ABBOTT-08P-163-0471123-00

PATIENT
  Sex: Female
  Weight: 74.91 kg

DRUGS (3)
  1. NIASPAN [Suspect]
     Indication: BLOOD CHOLESTEROL
     Route: 048
     Dates: start: 20080729, end: 20080816
  2. NIASPAN [Suspect]
     Indication: BLOOD TRIGLYCERIDES
  3. LEVOTHYROXINE SODIUM [Concomitant]
     Indication: HYPOTHYROIDISM
     Route: 048
     Dates: start: 19740101

REACTIONS (4)
  - ABDOMINAL PAIN UPPER [None]
  - PARAESTHESIA [None]
  - PRURITUS [None]
  - RASH [None]
